FAERS Safety Report 10236839 (Version 1)
Quarter: 2014Q2

REPORT INFORMATION
  Report Type: Spontaneous
  Country: US (occurrence: US)
  Receive Date: 20140613
  Receipt Date: 20140613
  Transmission Date: 20141212
  Serious: Yes (Hospitalization)
  Sender: FDA-Public Use
  Company Number: US-B.I. PHARMACEUTICALS,INC./RIDGEFIELD-2014-BI-26215BP

PATIENT
  Sex: Female

DRUGS (10)
  1. PRADAXA [Suspect]
     Indication: ATRIAL FIBRILLATION
     Dosage: 300 MG
     Route: 048
     Dates: start: 201201
  2. LASIX [Concomitant]
     Indication: CARDIAC FAILURE CONGESTIVE
     Dosage: 80 MG
     Route: 048
     Dates: start: 201201
  3. DIGOXIN [Concomitant]
     Indication: ATRIAL FIBRILLATION
     Dosage: 0.25 MG
     Route: 048
     Dates: start: 201201
  4. METOPROLOL [Concomitant]
     Indication: HYPERTENSION
     Dosage: 100 MG
     Route: 048
     Dates: start: 2012
  5. DILTIAZEM [Concomitant]
     Indication: ATRIAL FIBRILLATION
     Dosage: 90 MG
     Route: 048
     Dates: start: 2012
  6. PERCOCET [Concomitant]
     Indication: FIBROMYALGIA
     Route: 048
     Dates: start: 1999
  7. SKELAXIN [Concomitant]
     Indication: FIBROMYALGIA
     Dosage: 800 MG
     Route: 048
  8. ULTRAM [Concomitant]
     Indication: FIBROMYALGIA
     Dosage: 50 MG
     Route: 048
     Dates: start: 1999
  9. ZYRTEC [Concomitant]
     Indication: MULTIPLE ALLERGIES
     Route: 048
  10. VITAMIN D [Concomitant]
     Indication: VITAMIN D DECREASED
     Dosage: 2000 MG
     Route: 048
     Dates: start: 2011

REACTIONS (4)
  - Tachycardia [Recovered/Resolved]
  - Bradycardia [Recovered/Resolved]
  - Rotator cuff syndrome [Recovered/Resolved]
  - Diabetes mellitus [Not Recovered/Not Resolved]
